FAERS Safety Report 9861319 (Version 1)
Quarter: 2014Q1

REPORT INFORMATION
  Report Type: Report from Study
  Country: US (occurrence: US)
  Receive Date: 20140202
  Receipt Date: 20140202
  Transmission Date: 20141002
  Serious: Yes (Other)
  Sender: FDA-Public Use
  Company Number: US-ROCHE-1339240

PATIENT
  Sex: 0

DRUGS (7)
  1. BEVACIZUMAB [Suspect]
     Indication: METASTASES TO LIVER
     Dosage: ON DAY 1
     Route: 042
  2. OXALIPLATIN [Suspect]
     Indication: METASTASES TO LIVER
     Dosage: ON DAY 1
     Route: 013
  3. FLUOROURACIL [Suspect]
     Indication: METASTASES TO LIVER
     Dosage: ESCALATING DOSES: 900, 1,125, 1,400, AND 1,750 MG/M2 AS CONTINUOUS HAI INFUSION OVER 24 HOUR (DAYS 1
     Route: 013
  4. FLUOROURACIL [Suspect]
     Dosage: ESCALATING DOSES OF 5-FU IV (BOLUS 300-400 MG/M2 FOLLOWED BY 600-1,000 MG/M2 OVER 22 HOUR).  INTRAVE
     Route: 040
  5. CETUXIMAB [Suspect]
     Indication: METASTASES TO LIVER
     Dosage: ESCALATING DOSES RANGING FROM 250 TO 500 MG/M2: LOADING DOSE
     Route: 042
  6. CETUXIMAB [Suspect]
     Dosage: 125-250 MG/M2: MAINTENANCE DOSE
     Route: 042
  7. LEUCOVORIN [Suspect]
     Indication: METASTASES TO LIVER
     Dosage: ON DAYS 1-2
     Route: 042

REACTIONS (12)
  - Alanine aminotransferase abnormal [Unknown]
  - Hyperkalaemia [Unknown]
  - Hyperuricaemia [Unknown]
  - Hyperbilirubinaemia [Unknown]
  - Hypokalaemia [Unknown]
  - Fatigue [Unknown]
  - Constipation [Unknown]
  - Diarrhoea [Unknown]
  - Anaemia [Unknown]
  - Thrombocytopenia [Unknown]
  - Hyperglycaemia [Unknown]
  - Neutropenia [Unknown]
